FAERS Safety Report 17897073 (Version 1)
Quarter: 2020Q2

REPORT INFORMATION
  Report Type: Report from Study
  Country: US (occurrence: US)
  Receive Date: 20200615
  Receipt Date: 20200615
  Transmission Date: 20200714
  Serious: Yes (Death, Hospitalization)
  Sender: FDA-Public Use
  Company Number: US-ACTELION-A-NJ2019-193130

PATIENT
  Age: 72 Year
  Sex: Female

DRUGS (14)
  1. SPIRONOLACTONE. [Concomitant]
     Active Substance: SPIRONOLACTONE
  2. SILDENAFIL. [Concomitant]
     Active Substance: SILDENAFIL
  3. TRACLEER [Suspect]
     Active Substance: BOSENTAN
     Indication: PULMONARY ARTERIAL HYPERTENSION
     Dosage: 125 MG, BID
     Route: 048
     Dates: start: 20180111
  4. IPRATROPIUM [Concomitant]
     Active Substance: IPRATROPIUM
  5. URSODIOL. [Concomitant]
     Active Substance: URSODIOL
  6. ZOLPIDEM [Concomitant]
     Active Substance: ZOLPIDEM TARTRATE
  7. TRACLEER [Suspect]
     Active Substance: BOSENTAN
     Dosage: 162 MG, BID
     Route: 048
  8. ADVAIR HFA [Concomitant]
     Active Substance: FLUTICASONE PROPIONATE\SALMETEROL XINAFOATE
  9. TORSEMIDE. [Concomitant]
     Active Substance: TORSEMIDE
  10. BUDESONIDE. [Concomitant]
     Active Substance: BUDESONIDE
  11. GABAPENIN [Concomitant]
     Active Substance: GABAPENTIN
  12. PRAVACHOL [Concomitant]
     Active Substance: PRAVASTATIN SODIUM
  13. PREDNISONE. [Concomitant]
     Active Substance: PREDNISONE
  14. POTASSIUM CHLORIDE. [Concomitant]
     Active Substance: POTASSIUM CHLORIDE

REACTIONS (3)
  - Hospice care [Unknown]
  - Pneumonia [Recovered/Resolved]
  - Death [Fatal]

NARRATIVE: CASE EVENT DATE: 20190615
